FAERS Safety Report 18386844 (Version 1)
Quarter: 2020Q4

REPORT INFORMATION
  Report Type: Spontaneous
  Country: US (occurrence: US)
  Receive Date: 20201014
  Receipt Date: 20201014
  Transmission Date: 20210114
  Serious: No
  Sender: FDA-Public Use
  Company Number: None

PATIENT

DRUGS (1)
  1. ALBUTEROL INHALER [Suspect]
     Active Substance: ALBUTEROL

REACTIONS (4)
  - Drug ineffective [None]
  - Device malfunction [None]
  - Product substitution issue [None]
  - Recalled product [None]

NARRATIVE: CASE EVENT DATE: 20200914
